FAERS Safety Report 8381343-6 (Version None)
Quarter: 2012Q2

REPORT INFORMATION
  Report Type: 
  Country: None (occurrence: None)
  Receive Date: 20120523
  Receipt Date: 20120517
  Transmission Date: 20120825
  Serious: Yes (Other)
  Sender: FDA-Public Use
  Company Number: US-PFIZER INC-2012120532

PATIENT
  Sex: Female
  Weight: 53.515 kg

DRUGS (5)
  1. AVAPRO [Concomitant]
     Indication: HYPERTENSION
     Dosage: 75 MG, DAILY
  2. LYRICA [Suspect]
     Dosage: 50 MG IN MORNING AND 75 MG AT NIGHT
     Dates: start: 20120101
  3. LYRICA [Suspect]
     Indication: NEURALGIA
     Dosage: 75 MG, 2X/DAY
     Dates: start: 20120101
  4. ZEBETA [Concomitant]
     Indication: HYPERTENSION
     Dosage: 7.5 MG IN MORNING AND 5 MG AT NIGHT
  5. MIRALAX [Concomitant]
     Dosage: UNK
     Dates: start: 20120515

REACTIONS (8)
  - OEDEMA PERIPHERAL [None]
  - SKIN DEPIGMENTATION [None]
  - DRUG ADMINISTRATION ERROR [None]
  - WEIGHT INCREASED [None]
  - LIMB DISCOMFORT [None]
  - ABASIA [None]
  - ERYTHEMA [None]
  - PAIN [None]
